FAERS Safety Report 15832602 (Version 2)
Quarter: 2019Q1

REPORT INFORMATION
  Report Type: Report from Study
  Country: IL (occurrence: IL)
  Receive Date: 20190116
  Receipt Date: 20190122
  Transmission Date: 20190417
  Serious: Yes (Hospitalization)
  Sender: FDA-Public Use
  Company Number: PHHO2017IL012268

PATIENT
  Age: 44 Year
  Sex: Male
  Weight: 65 kg

DRUGS (4)
  1. CYCLOSPORINE. [Concomitant]
     Active Substance: CYCLOSPORINE
     Indication: ACUTE GRAFT VERSUS HOST DISEASE
     Dosage: 300 MG, QD
     Route: 048
     Dates: start: 20170719
  2. EXTRACORPOREAL PHOTOPHERESIS (METHOXSALEN) [Suspect]
     Active Substance: METHOXSALEN
     Indication: ACUTE GRAFT VERSUS HOST DISEASE
     Dosage: OT
     Route: 042
     Dates: start: 20170719
  3. MYCOPHENOLATE MOFETIL. [Suspect]
     Active Substance: MYCOPHENOLATE MOFETIL
     Indication: ACUTE GRAFT VERSUS HOST DISEASE
     Dosage: 2000 MG, QD
     Route: 042
     Dates: start: 20170720
  4. ZOVIRAX [Concomitant]
     Active Substance: ACYCLOVIR
     Indication: ANTIVIRAL PROPHYLAXIS
     Dosage: 800 MG, TID
     Route: 048
     Dates: start: 20170712, end: 20170808

REACTIONS (4)
  - Stem cell transplant [None]
  - Cytomegalovirus infection [Recovered/Resolved]
  - Neutropenia [Recovered/Resolved]
  - Cytomegalovirus test positive [None]

NARRATIVE: CASE EVENT DATE: 20170731
